FAERS Safety Report 12960438 (Version 1)
Quarter: 2016Q4

REPORT INFORMATION
  Report Type: Spontaneous
  Country: US (occurrence: US)
  Receive Date: 20161121
  Receipt Date: 20161121
  Transmission Date: 20170207
  Serious: No
  Sender: FDA-Public Use
  Company Number: US-TEVA-714149ACC

PATIENT
  Sex: Female
  Weight: 52.21 kg

DRUGS (2)
  1. RISEDRONATE SODIUM DELAYED-RELEASE [Suspect]
     Active Substance: RISEDRONATE SODIUM
     Indication: HYPOCALCAEMIA
  2. RISEDRONATE SODIUM DELAYED-RELEASE [Suspect]
     Active Substance: RISEDRONATE SODIUM
     Indication: OSTEOPOROSIS
     Dates: start: 20160916

REACTIONS (2)
  - Gait disturbance [Unknown]
  - Dry skin [Unknown]
